FAERS Safety Report 6527262-9 (Version None)
Quarter: 2010Q1

REPORT INFORMATION
  Report Type: 
  Country: None (occurrence: None)
  Receive Date: 20100105
  Receipt Date: 20091228
  Transmission Date: 20100710
  Serious: Yes (Hospitalization)
  Sender: FDA-Public Use
  Company Number: DE-PFIZER INC-2009288801

PATIENT
  Age: 60 Year
  Sex: Male
  Weight: 58 kg

DRUGS (4)
  1. ATORVASTATIN CALCIUM [Interacting]
     Indication: HYPERCHOLESTEROLAEMIA
     Dosage: 40 MG, 1X/DAY
     Route: 048
     Dates: start: 20090319, end: 20091026
  2. ST. JOHN'S WORT [Interacting]
     Indication: MOOD ALTERED
     Dosage: UNK
     Dates: start: 20091005, end: 20091105
  3. LAIF [Interacting]
     Indication: MOOD ALTERED
     Dosage: 600 MG, 1X/DAY
     Route: 048
     Dates: start: 20091005, end: 20091026
  4. PROPECIA [Suspect]
     Indication: ALOPECIA
     Dosage: 1.25 MG, 1X/DAY
     Route: 048
     Dates: end: 20091026

REACTIONS (2)
  - DRUG INTERACTION [None]
  - HEPATITIS [None]
